FAERS Safety Report 9598877 (Version 1)
Quarter: 2013Q4

REPORT INFORMATION
  Report Type: Spontaneous
  Country: US (occurrence: US)
  Receive Date: 20131004
  Receipt Date: 20131004
  Transmission Date: 20140711
  Serious: No
  Sender: FDA-Public Use
  Company Number: US-AMGEN-USASP2013026597

PATIENT
  Age: 57 Year
  Sex: Female

DRUGS (23)
  1. ENBREL [Suspect]
     Indication: PRODUCT USED FOR UNKNOWN INDICATION
     Dosage: 50 MG, QWK
     Route: 058
  2. MULTIVITAMINS, PLAIN [Concomitant]
     Dosage: UNK
  3. CALCIUM [Concomitant]
     Dosage: 500 UNK, UNK
  4. VITAMIN E                          /00110501/ [Concomitant]
     Dosage: 1000 UNIT, UNK
  5. VITAMIN C                          /00008001/ [Concomitant]
     Dosage: 500 MG, UNK
  6. VITAMIN D                          /00107901/ [Concomitant]
     Dosage: 1000 UNIT, UNK
  7. LORATADINE [Concomitant]
     Dosage: 10 MG, UNK
  8. ASPIRE [Concomitant]
     Dosage: 81 MG, UNK
  9. AMLODIPINE W/BENAZEPRIL [Concomitant]
     Dosage: CAP 10-20 MG UNK
  10. TOPROL [Concomitant]
     Dosage: 100 MG, UNK
  11. SULFASALAZIN [Concomitant]
     Dosage: 500 MG, UNK
  12. FUROSEMIDE [Concomitant]
     Dosage: 40 MG, UNK
  13. EFFEXOR XR [Concomitant]
     Dosage: 150 MG, UNK
  14. SPIRONOLACTON [Concomitant]
     Dosage: 25 MG, UNK
  15. ZOCOR [Concomitant]
     Dosage: 10 MG, UNK
  16. NEXIUM                             /01479302/ [Concomitant]
     Dosage: 40 MG, UNK
  17. ADVAIR [Concomitant]
     Dosage: 100/50  UNK
  18. SIMVASTATIN [Concomitant]
     Dosage: 10 MG, UNK
  19. CLONIDINE [Concomitant]
     Dosage: 0.1 MG, UNK
  20. CLONAZEPAM [Concomitant]
     Dosage: 1 MG, UNK
  21. TRAMADOL HCL [Concomitant]
     Dosage: 50 MG, UNK
  22. CELEBREX [Concomitant]
     Dosage: 50 MG, UNK
  23. METHOTREXATE [Concomitant]

REACTIONS (3)
  - Stress [Unknown]
  - Drug effect decreased [Unknown]
  - Psoriasis [Unknown]
